FAERS Safety Report 11071275 (Version 1)
Quarter: 2015Q2

REPORT INFORMATION
  Report Type: Spontaneous
  Country: US (occurrence: None)
  Receive Date: 20150427
  Receipt Date: 20150427
  Transmission Date: 20150821
  Serious: Yes (Other)
  Sender: FDA-Public Use
  Company Number: None

PATIENT
  Age: 66 Year
  Sex: Female
  Weight: 68.04 kg

DRUGS (7)
  1. VITD [Concomitant]
  2. CLONAZEPAM. [Suspect]
     Active Substance: CLONAZEPAM
     Indication: RESTLESS LEGS SYNDROME
     Dosage: 1, AT BEDTIME, TAKEN BY MOUTH
     Route: 048
     Dates: start: 20150401, end: 20150425
  3. MAGNESIUM [Concomitant]
     Active Substance: MAGNESIUM
  4. MOBIL [Concomitant]
  5. PLAQUENIL [Concomitant]
     Active Substance: HYDROXYCHLOROQUINE SULFATE
  6. NEUROTIN [Concomitant]
     Active Substance: GABAPENTIN
  7. CALCIUM [Concomitant]
     Active Substance: CALCIUM

REACTIONS (3)
  - Feeling hot [None]
  - Autonomic nervous system imbalance [None]
  - Poor quality sleep [None]

NARRATIVE: CASE EVENT DATE: 20150417
